FAERS Safety Report 4855774-2 (Version None)
Quarter: 2005Q4

REPORT INFORMATION
  Report Type: 
  Country: None (occurrence: None)
  Receive Date: 20051216
  Receipt Date: 20050916
  Transmission Date: 20060501
  Serious: Yes (Death, Hospitalization)
  Sender: FDA-Public Use
  Company Number: US-MERCK-0509USA02677

PATIENT
  Age: 80 Year
  Sex: Female
  Weight: 59 kg

DRUGS (11)
  1. VIOXX [Suspect]
     Indication: RHEUMATOID ARTHRITIS
     Route: 048
     Dates: start: 20010930, end: 20011021
  2. VIOXX [Suspect]
     Indication: PAIN
     Route: 048
     Dates: start: 20010930, end: 20011021
  3. PROZAC [Concomitant]
     Indication: DEPRESSION
     Route: 065
  4. ULTRAM [Concomitant]
     Indication: ARTHRALGIA
     Route: 065
  5. RELAFEN [Concomitant]
     Indication: ARTHRALGIA
     Route: 065
  6. MIACALCIN [Concomitant]
     Indication: OSTEOPOROSIS
     Route: 065
  7. VICODIN [Concomitant]
     Indication: ARTHRALGIA
     Route: 065
  8. ALBUTEROL [Concomitant]
     Indication: ASTHMA
     Route: 065
  9. VANCERIL [Concomitant]
     Indication: HYPERSENSITIVITY
     Route: 065
  10. DILACOR XR [Concomitant]
     Indication: CHEST PAIN
     Route: 065
     Dates: end: 20010101
  11. DILACOR XR [Concomitant]
     Indication: HYPERTENSION
     Route: 065
     Dates: end: 20010101

REACTIONS (3)
  - CEREBROVASCULAR ACCIDENT [None]
  - MYOCARDIAL INFARCTION [None]
  - MYOCARDIAL ISCHAEMIA [None]
